FAERS Safety Report 6726061-2 (Version None)
Quarter: 2010Q2

REPORT INFORMATION
  Report Type: 
  Country: None (occurrence: None)
  Receive Date: 20100514
  Receipt Date: 20100420
  Transmission Date: 20101027
  Serious: Yes (Other)
  Sender: FDA-Public Use
  Company Number: US-MERCK-1005USA00423

PATIENT

DRUGS (5)
  1. HYDRODIURIL [Suspect]
     Route: 048
  2. ZOCOR [Suspect]
     Route: 048
  3. BENAZEPRIL HYDROCHLORIDE [Suspect]
     Route: 065
  4. ACETAMINOPHEN [Suspect]
     Route: 065
  5. AMLODIPINE [Suspect]
     Route: 065

REACTIONS (1)
  - RHABDOMYOLYSIS [None]
